FAERS Safety Report 8594179 (Version 2)
Quarter: 2012Q4

REPORT INFORMATION
  Report Type: Report from Study
  Country: US (occurrence: US)
  Receive Date: 20120604
  Receipt Date: 20121009
  Transmission Date: 20130627
  Serious: Yes (Hospitalization)
  Sender: FDA-Public Use
  Company Number: US-ROCHE-1072206

PATIENT
  Age: 51 Year
  Sex: Male
  Weight: 60.38 kg

DRUGS (12)
  1. PEGASYS [Suspect]
     Indication: HEPATITIS C
     Route: 065
     Dates: start: 20060426, end: 20070515
  2. PEGASYS [Suspect]
     Route: 058
     Dates: start: 20120322
  3. COPEGUS [Suspect]
     Indication: HEPATITIS C
     Route: 048
     Dates: start: 20120322
  4. UNSPECIFIED INGREDIENT [Suspect]
     Indication: HEPATITIS C
     Route: 048
     Dates: start: 20120322
  5. LYRICA [Concomitant]
     Indication: FIBROMYALGIA
     Route: 048
     Dates: start: 2001
  6. BUPROPION [Concomitant]
     Indication: DEPRESSION
     Route: 048
  7. ATORVASTATIN [Concomitant]
     Indication: HYPERCHOLESTEROLAEMIA
     Route: 065
     Dates: start: 2008
  8. LISINOPRIL [Concomitant]
     Indication: HYPERTENSION
  9. LEVOTHYROXINE [Concomitant]
     Indication: HYPOTHYROIDISM
  10. FENTANYL [Concomitant]
     Indication: NECK PAIN
     Route: 062
     Dates: start: 20120323, end: 20120323
  11. NEURONTIN [Concomitant]
     Indication: NECK PAIN
     Route: 048
     Dates: start: 20120324
  12. LEVOFLOXACIN [Concomitant]
     Route: 048
     Dates: start: 20120414, end: 20120423

REACTIONS (3)
  - Road traffic accident [Recovered/Resolved with Sequelae]
  - Thoracic vertebral fracture [Recovered/Resolved with Sequelae]
  - Pneumothorax traumatic [Recovered/Resolved]
